FAERS Safety Report 11200096 (Version 4)
Quarter: 2016Q2

REPORT INFORMATION
  Report Type: Spontaneous
  Country: JP (occurrence: JP)
  Receive Date: 20150618
  Receipt Date: 20160406
  Transmission Date: 20160815
  Serious: Yes (Life-Threatening)
  Sender: FDA-Public Use
  Company Number: JP-DSJP-DSJ-2015-118587AA

PATIENT

DRUGS (6)
  1. LIXIANA TABLETS 15MG [Suspect]
     Active Substance: EDOXABAN TOSILATE MONOHYDRATE
     Indication: DEEP VEIN THROMBOSIS
     Dosage: 30MG/DAY
     Route: 048
     Dates: start: 20150306, end: 20150313
  2. FUROSEMIDE. [Concomitant]
     Active Substance: FUROSEMIDE
     Indication: CARDIAC FAILURE
     Dosage: 40 MG, QD
     Route: 048
  3. LANSOPRAZOLE. [Concomitant]
     Active Substance: LANSOPRAZOLE
     Dosage: 15 MG, QD
     Route: 048
  4. SOLULACT [Concomitant]
     Dosage: 500 ML, QD
     Route: 041
     Dates: start: 20150304, end: 20150309
  5. SOLDEM 3AG [Concomitant]
     Dosage: 500 ML, QD
     Route: 041
     Dates: start: 20150305, end: 20150309
  6. FLAGYL [Concomitant]
     Active Substance: METRONIDAZOLE\METRONIDAZOLE HYDROCHLORIDE
     Indication: CLOSTRIDIUM TEST POSITIVE
     Dosage: 250 MG, QID
     Route: 048
     Dates: start: 20150227, end: 20150318

REACTIONS (1)
  - Hyperkalaemia [Recovered/Resolved]

NARRATIVE: CASE EVENT DATE: 20150309
